FAERS Safety Report 5014530-5 (Version None)
Quarter: 2006Q2

REPORT INFORMATION
  Report Type: 
  Country: None (occurrence: None)
  Receive Date: 20060525
  Receipt Date: 20060519
  Transmission Date: 20061013
  Serious: Yes (Other)
  Sender: FDA-Public Use
  Company Number: HQWYE412819MAY06

PATIENT
  Age: 86 Year
  Sex: Female

DRUGS (3)
  1. INDERAL [Suspect]
  2. BENDROFLUAZIDE (BENDROFLUMETHIAZIDE,) [Suspect]
     Dosage: 2.5 MG 1X PER 1 DAY
  3. HYDRALAZINE HCL [Suspect]

REACTIONS (1)
  - HYPOKALAEMIA [None]
